FAERS Safety Report 9681882 (Version 1)
Quarter: 2013Q4

REPORT INFORMATION
  Report Type: Spontaneous
  Country: US (occurrence: US)
  Receive Date: 20131111
  Receipt Date: 20131111
  Transmission Date: 20140711
  Serious: No
  Sender: FDA-Public Use
  Company Number: US-PFIZER INC-2013319908

PATIENT
  Age: 67 Year
  Sex: Female
  Weight: 48.07 kg

DRUGS (1)
  1. PHENYTOIN [Suspect]
     Indication: CONVULSION
     Dosage: UNK

REACTIONS (1)
  - Drug effect incomplete [Unknown]
